FAERS Safety Report 11837259 (Version 9)
Quarter: 2017Q1

REPORT INFORMATION
  Report Type: Spontaneous
  Country: US (occurrence: US)
  Receive Date: 20151215
  Receipt Date: 20170130
  Transmission Date: 20170428
  Serious: Yes (Other)
  Sender: FDA-Public Use
  Company Number: US-PFIZER INC-2015422222

PATIENT
  Age: 70 Year
  Sex: Male
  Weight: 99.77 kg

DRUGS (5)
  1. SUTENT [Suspect]
     Active Substance: SUNITINIB MALATE
     Indication: METASTATIC RENAL CELL CARCINOMA
     Dosage: 50 MG, CYCLIC (2 WEEKS ON, 1 WEEK OFF)
     Route: 048
     Dates: start: 20151023
  2. SUTENT [Suspect]
     Active Substance: SUNITINIB MALATE
     Dosage: 37.5 MG, CYCLIC (DAYS 1-14 EVERY 21 DAYS)
     Route: 048
  3. SUTENT [Suspect]
     Active Substance: SUNITINIB MALATE
     Dosage: 37.5 MG, 1X/DAY
     Route: 048
     Dates: start: 20160209
  4. SUTENT [Suspect]
     Active Substance: SUNITINIB MALATE
     Dosage: 37.5 MG, UNK (DAYS 1-14 EVERY 21 DAYS/DAYS 1-14 Q21 DAYS)
     Route: 048
     Dates: start: 20151023, end: 201701
  5. SUTENT [Suspect]
     Active Substance: SUNITINIB MALATE
     Dosage: 37.5 MG, CYCLIC (DAYS 1-14 EVERY 21 DAYS)
     Route: 048
     Dates: start: 20151023

REACTIONS (11)
  - Constipation [Unknown]
  - Cough [Unknown]
  - Nasopharyngitis [Unknown]
  - Neoplasm progression [Unknown]
  - Hyperthyroidism [Unknown]
  - Pruritus [Unknown]
  - Pain in extremity [Unknown]
  - Scan abnormal [Unknown]
  - Dry skin [Unknown]
  - Fatigue [Unknown]
  - Dysgeusia [Unknown]
